FAERS Safety Report 14377945 (Version 4)
Quarter: 2018Q1

REPORT INFORMATION
  Report Type: Spontaneous
  Country: DE (occurrence: DE)
  Receive Date: 20180111
  Receipt Date: 20180308
  Transmission Date: 20180509
  Serious: Yes (Hospitalization)
  Sender: FDA-Public Use
  Company Number: DE-BAUSCH-BL-2017-036515

PATIENT
  Age: 60 Year
  Sex: Male
  Weight: 95 kg

DRUGS (28)
  1. AVASTIN [Suspect]
     Active Substance: BEVACIZUMAB
     Dosage: 500 MG 2 DOSAGE FORM PER WEEK
     Route: 042
     Dates: start: 20171016, end: 20171016
  2. FOLINIC ACID [Concomitant]
     Active Substance: LEUCOVORIN
     Dosage: UNKNOWN DOSAGE
     Dates: start: 20171016
  3. 5-FLUOROURACIL [Suspect]
     Active Substance: FLUOROURACIL
     Dosage: 4800-6400 MG, 2/WEEKLY
     Route: 041
     Dates: start: 20160704
  4. 5-FLUOROURACIL [Suspect]
     Active Substance: FLUOROURACIL
     Dosage: 6400MG 2DF PER WEEK
     Route: 041
     Dates: start: 20170410, end: 20170412
  5. EMEND [Concomitant]
     Active Substance: APREPITANT
     Indication: PROPHYLAXIS OF NAUSEA AND VOMITING
     Dosage: 125/80 MG
     Dates: start: 20160704
  6. DEXAMETHASONE. [Concomitant]
     Active Substance: DEXAMETHASONE
     Dosage: 2 DOSAGE FORM PER WEEK
     Route: 042
     Dates: start: 20170116
  7. 5-FLUOROURACIL [Concomitant]
     Active Substance: FLUOROURACIL
     Dates: start: 20170704, end: 20170706
  8. PEGYLATED LIPOSOMAL IRINOTECAN (IRINOTECAN LIPOSOME) [Suspect]
     Active Substance: IRINOTECAN HYDROCHLORIDE
     Indication: COLON CANCER METASTATIC
     Dosage: ONE DOSE FORM WEEKLY
     Route: 042
     Dates: start: 20160704, end: 20161205
  9. FOLINIC ACID [Concomitant]
     Active Substance: LEUCOVORIN
     Indication: COLORECTAL CANCER
     Dosage: 2 DOSAGE FORM PER WEEK
     Route: 042
     Dates: start: 20160704, end: 20170410
  10. METOCLOPRAMIDE. [Concomitant]
     Active Substance: METOCLOPRAMIDE
     Indication: PRODUCT USED FOR UNKNOWN INDICATION
     Route: 048
     Dates: start: 20171016
  11. DEXAMETHASONE. [Concomitant]
     Active Substance: DEXAMETHASONE
     Indication: PROPHYLAXIS OF NAUSEA AND VOMITING
     Dosage: 8 MG 2 DOSAGE FORM PER WEEK
     Route: 042
     Dates: start: 20160604, end: 20161206
  12. RIVAROXABAN [Suspect]
     Active Substance: RIVAROXABAN
     Indication: DEEP VEIN THROMBOSIS
     Route: 048
     Dates: start: 20170524
  13. PEGYLATED LIPOSOMAL IRINOTECAN (IRINOTECAN LIPOSOME) [Suspect]
     Active Substance: IRINOTECAN HYDROCHLORIDE
     Dosage: 1 DOSAGE FORM PER WEEK
     Route: 042
     Dates: start: 20171016, end: 20171016
  14. PEGYLATED LIPOSOMAL IRINOTECAN (IRINOTECAN LIPOSOME) [Suspect]
     Active Substance: IRINOTECAN HYDROCHLORIDE
     Dosage: 2 DOSAGE FORM PER WEEK
     Route: 042
     Dates: start: 20160704, end: 20161205
  15. PALONOSETRON HYDROCHLORIDE. [Suspect]
     Active Substance: PALONOSETRON HYDROCHLORIDE
     Indication: PROPHYLAXIS OF NAUSEA AND VOMITING
     Route: 065
     Dates: start: 20171030
  16. 5-FLUOROURACIL [Concomitant]
     Active Substance: FLUOROURACIL
     Dosage: 800 MG 2 DOSAGE FORM PER WEEK
     Route: 042
     Dates: start: 20160704, end: 20161205
  17. 5-FLUOROURACIL [Suspect]
     Active Substance: FLUOROURACIL
     Route: 042
     Dates: start: 20160704, end: 20170706
  18. AVASTIN [Suspect]
     Active Substance: BEVACIZUMAB
     Indication: COLON CANCER METASTATIC
     Dosage: 475 MG 2 DOSAGE FORM PER WEEK
     Route: 042
     Dates: start: 20160704, end: 20160704
  19. 5-FLUOROURACIL [Concomitant]
     Active Substance: FLUOROURACIL
     Indication: PRODUCT USED FOR UNKNOWN INDICATION
     Dosage: 6400 MG 2 DOSAGE FORM PER WEEK
     Route: 041
     Dates: start: 20170410, end: 20170412
  20. 5-FLUOROURACIL [Suspect]
     Active Substance: FLUOROURACIL
     Indication: COLON CANCER METASTATIC
     Dosage: 1600 MG 2 DOSAGE FORM PER WEEK
     Route: 040
     Dates: start: 20160704, end: 20161205
  21. 5-FLUOROURACIL [Suspect]
     Active Substance: FLUOROURACIL
     Route: 040
     Dates: start: 20171001, end: 20171004
  22. ONDANSETRON [Suspect]
     Active Substance: ONDANSETRON
     Indication: PROPHYLAXIS OF NAUSEA AND VOMITING
     Dosage: 8 MG 2 DOSAGE FORM PER WEEK
     Route: 042
     Dates: start: 20170116
  23. NOVALGIN (METAMIZOLE SODIUM) [Concomitant]
     Active Substance: METAMIZOLE SODIUM
     Indication: ANALGESIC THERAPY
     Route: 048
     Dates: start: 20160620
  24. 5-FLUOROURACIL [Concomitant]
     Active Substance: FLUOROURACIL
     Route: 042
     Dates: start: 20171016
  25. 5-FLUOROURACIL [Suspect]
     Active Substance: FLUOROURACIL
     Route: 042
     Dates: start: 20171016, end: 20171016
  26. 5-FLUOROURACIL [Suspect]
     Active Substance: FLUOROURACIL
     Route: 042
  27. BEVACIZUMAB. [Suspect]
     Active Substance: BEVACIZUMAB
     Indication: PRODUCT USED FOR UNKNOWN INDICATION
     Dosage: 500MG 2/WEEKLY
     Route: 042
     Dates: start: 20171002, end: 20171002
  28. RAMIPRIL. [Concomitant]
     Active Substance: RAMIPRIL
     Indication: PRODUCT USED FOR UNKNOWN INDICATION
     Route: 048
     Dates: start: 20170410

REACTIONS (7)
  - Constipation [Not Recovered/Not Resolved]
  - Vomiting [Recovered/Resolved]
  - Deep vein thrombosis [Recovered/Resolved with Sequelae]
  - Paraesthesia [Recovered/Resolved]
  - Haematochezia [Recovered/Resolved]
  - Nausea [Recovered/Resolved with Sequelae]
  - Off label use [Unknown]

NARRATIVE: CASE EVENT DATE: 20160704
